FAERS Safety Report 25278400 (Version 1)
Quarter: 2025Q2

REPORT INFORMATION
  Report Type: Spontaneous
  Country: US (occurrence: None)
  Receive Date: 20250507
  Receipt Date: 20250507
  Transmission Date: 20250716
  Serious: No
  Sender: AXSOME THERAPEUTICS, INC.
  Company Number: US-Axsome Therapeutics, Inc.-AXS202504-000606

PATIENT
  Sex: Female

DRUGS (2)
  1. AUVELITY [Suspect]
     Active Substance: BUPROPION HYDROCHLORIDE\DEXTROMETHORPHAN HYDROBROMIDE
     Indication: Product used for unknown indication
     Route: 065
  2. WEGOVY [Concomitant]
     Active Substance: SEMAGLUTIDE
     Indication: Weight decreased
     Route: 065

REACTIONS (4)
  - Feeling drunk [Unknown]
  - Dry eye [Unknown]
  - Vision blurred [Unknown]
  - Incorrect dose administered [Unknown]
